FAERS Safety Report 20184800 (Version 1)
Quarter: 2021Q4

REPORT INFORMATION
  Report Type: Spontaneous
  Country: US (occurrence: US)
  Receive Date: 20211214
  Receipt Date: 20211214
  Transmission Date: 20220303
  Serious: No
  Sender: FDA-Public Use
  Company Number: US-BoehringerIngelheim-2021-BI-143683

PATIENT
  Sex: Female

DRUGS (3)
  1. JARDIANCE [Suspect]
     Active Substance: EMPAGLIFLOZIN
     Indication: Type 2 diabetes mellitus
     Dosage: 10 MG DAILY
  2. METFORMIN [Suspect]
     Active Substance: METFORMIN HYDROCHLORIDE
     Indication: Type 2 diabetes mellitus
     Dosage: 10MG BID
  3. FARXIGA [Concomitant]
     Active Substance: DAPAGLIFLOZIN PROPANEDIOL
     Indication: Type 2 diabetes mellitus
     Dosage: 10MG DAILY

REACTIONS (4)
  - Diarrhoea [Unknown]
  - Nausea [Unknown]
  - Headache [Unknown]
  - Abdominal pain [Unknown]
